FAERS Safety Report 14314980 (Version 1)
Quarter: 2017Q4

REPORT INFORMATION
  Report Type: Spontaneous
  Country: US (occurrence: US)
  Receive Date: 20171221
  Receipt Date: 20171221
  Transmission Date: 20180321
  Serious: Yes (Hospitalization)
  Sender: FDA-Public Use
  Company Number: US-BRAINTREE LABORATORIES-170710

PATIENT
  Age: 70 Year
  Sex: Male
  Weight: 112.03 kg

DRUGS (1)
  1. SUPREP BOWEL PREP [Suspect]
     Active Substance: MAGNESIUM SULFATE\POTASSIUM SULFATE\SODIUM SULFATE
     Indication: COLONOSCOPY
     Dosage: 2 X 6 OZ. BOTTLE
     Route: 048
     Dates: start: 20171213, end: 20171214

REACTIONS (7)
  - Blood pressure increased [None]
  - Blood potassium decreased [None]
  - Syncope [None]
  - Dehydration [None]
  - Hyperhidrosis [None]
  - Feeling abnormal [None]
  - Hypersensitivity [None]

NARRATIVE: CASE EVENT DATE: 20171213
